FAERS Safety Report 22084308 (Version 2)
Quarter: 2023Q1

REPORT INFORMATION
  Report Type: Spontaneous
  Country: TW (occurrence: TW)
  Receive Date: 20230310
  Receipt Date: 20230322
  Transmission Date: 20230418
  Serious: Yes (Other)
  Sender: FDA-Public Use
  Company Number: TW-MYLANLABS-2023M1025221

PATIENT
  Age: 8 Decade
  Sex: Male

DRUGS (1)
  1. LIPITOR [Suspect]
     Active Substance: ATORVASTATIN CALCIUM
     Indication: Product used for unknown indication
     Dosage: 10 MILLIGRAM
     Route: 065
     Dates: start: 2003

REACTIONS (7)
  - Depression [Unknown]
  - Dyskinesia [Unknown]
  - Gait disturbance [Unknown]
  - Tremor [Recovering/Resolving]
  - Asthenia [Unknown]
  - Myalgia [Recovered/Resolved]
  - Off label use [Unknown]
